FAERS Safety Report 10032512 (Version 1)
Quarter: 2014Q1

REPORT INFORMATION
  Report Type: Spontaneous
  Country: US (occurrence: US)
  Receive Date: 20140324
  Receipt Date: 20140324
  Transmission Date: 20141002
  Serious: Yes (Other)
  Sender: FDA-Public Use
  Company Number: US-PFIZER INC-2014077851

PATIENT
  Age: 57 Year
  Sex: Male

DRUGS (2)
  1. DILANTIN-125 [Suspect]
     Dosage: 300 MG, 1X/DAY (HS)
     Route: 048
  2. PHENYTOIN SODIUM [Concomitant]
     Dosage: 100 MG, UNK (EXTENDED) (3 TABLET EVERY BEDTIME)
     Route: 048

REACTIONS (8)
  - Epilepsy [Unknown]
  - Syncope [Unknown]
  - Cyst [Unknown]
  - Dizziness [Unknown]
  - Balance disorder [Unknown]
  - Amnesia [Unknown]
  - Injury [Unknown]
  - Hypoacusis [Unknown]
